FAERS Safety Report 8909644 (Version 2)
Quarter: 2012Q4

REPORT INFORMATION
  Report Type: 
  Country: BR (occurrence: BR)
  Receive Date: 20121115
  Receipt Date: 20121217
  Transmission Date: 20130627
  Serious: Yes (Other)
  Sender: FDA-Public Use
  Company Number: BR-ROCHE-1151600

PATIENT
  Sex: Female
  Weight: 69 kg

DRUGS (6)
  1. RIVOTRIL [Suspect]
     Indication: DEPRESSION
     Route: 048
  2. RIVOTRIL [Suspect]
     Route: 065
  3. RIVOTRIL [Suspect]
     Dosage: 4 tablet
     Route: 065
  4. RIVOTRIL [Suspect]
     Route: 060
  5. MODURETIC [Concomitant]
     Indication: HYPERTENSION
     Route: 048
  6. AMYTRIL [Concomitant]
     Indication: HYPERTENSION
     Route: 048

REACTIONS (4)
  - Drug administration error [Unknown]
  - Medication error [Unknown]
  - Therapeutic response decreased [Unknown]
  - Abdominal hernia repair [Recovered/Resolved]
